FAERS Safety Report 9200847 (Version 1)
Quarter: 2013Q1

REPORT INFORMATION
  Report Type: Spontaneous
  Country: US (occurrence: None)
  Receive Date: 20130328
  Receipt Date: 20130328
  Transmission Date: 20140127
  Serious: Yes (Other)
  Sender: FDA-Public Use
  Company Number: None

PATIENT
  Age: 6 Year
  Sex: Female
  Weight: 16 kg

DRUGS (1)
  1. VECURONIUM [Suspect]
     Indication: CATHETERISATION CARDIAC
     Dosage: 0845 + 0945?
     Route: 040
     Dates: start: 20130207, end: 20130207

REACTIONS (1)
  - Drug ineffective [None]
